FAERS Safety Report 20733835 (Version 2)
Quarter: 2022Q3

REPORT INFORMATION
  Report Type: Spontaneous
  Country: US (occurrence: US)
  Receive Date: 20220421
  Receipt Date: 20220901
  Transmission Date: 20221027
  Serious: Yes (Other)
  Sender: FDA-Public Use
  Company Number: US-BRISTOL-MYERS SQUIBB COMPANY-2022-023096

PATIENT
  Age: 72 Year
  Sex: Male

DRUGS (5)
  1. REVLIMID [Suspect]
     Active Substance: LENALIDOMIDE
     Indication: Plasma cell myeloma
     Dosage: TAKE ONE CAPSULE BY MOUTH ONCE DAILY FOR 21 DAYS ON, THEN 7 DAYS OFF
     Route: 048
     Dates: start: 20211006
  2. DECADRON [Concomitant]
     Active Substance: DEXAMETHASONE
     Indication: Product used for unknown indication
     Route: 065
  3. ELIQUIS [Concomitant]
     Active Substance: APIXABAN
     Indication: Product used for unknown indication
     Route: 065
  4. PROCHLORPER [Concomitant]
     Indication: Product used for unknown indication
     Route: 065
  5. IZOFRAN [Concomitant]
     Indication: Product used for unknown indication
     Route: 065

REACTIONS (2)
  - Thrombosis [Not Recovered/Not Resolved]
  - Cataract [Unknown]

NARRATIVE: CASE EVENT DATE: 20220405
